FAERS Safety Report 11637786 (Version 2)
Quarter: 2015Q4

REPORT INFORMATION
  Report Type: Spontaneous
  Country: CH (occurrence: CH)
  Receive Date: 20151016
  Receipt Date: 20151022
  Transmission Date: 20160304
  Serious: Yes (Other)
  Sender: FDA-Public Use
  Company Number: CH-PFIZER INC-2015344297

PATIENT
  Age: 8 Year
  Sex: Female
  Weight: 47 kg

DRUGS (18)
  1. MITOTANE [Interacting]
     Active Substance: MITOTANE
     Indication: ADRENOCORTICAL CARCINOMA
     Dosage: 1500 MG-1500 MG-1500 MG-1000 MG 4X/DAY
     Route: 048
     Dates: start: 20150706, end: 20150908
  2. MITOTANE [Interacting]
     Active Substance: MITOTANE
     Dosage: 1500 MG-2000 MG-1500 MG-2000 MG 4X/DAY
     Route: 048
     Dates: start: 20150908, end: 20150910
  3. AMLODIPINE [Concomitant]
     Active Substance: AMLODIPINE BESYLATE
     Dosage: 2.5 MG, 2X/DAY (5 MILLIGRAM DAILY; CONTINUING)
     Route: 048
     Dates: start: 201507
  4. HYDROCORTISONE. [Concomitant]
     Active Substance: HYDROCORTISONE
     Dosage: 20 MG, 3X/DAY
     Dates: start: 20150912
  5. DOXORUBICIN HCL [Suspect]
     Active Substance: DOXORUBICIN HYDROCHLORIDE
     Indication: ADRENOCORTICAL CARCINOMA
     Dosage: 33 MG, 1X/DAY (33 MILLIGRAM DAILY)
     Route: 041
     Dates: start: 20150910, end: 20150911
  6. CLEXANE [Suspect]
     Active Substance: ENOXAPARIN SODIUM
     Indication: PULMONARY EMBOLISM
     Dosage: 35 MG, 2X/DAY (70 MILLIGRAM DAILY; CONTINUING)
     Route: 058
     Dates: start: 201507
  7. BACTRIM [Concomitant]
     Active Substance: SULFAMETHOXAZOLE\TRIMETHOPRIM
     Dosage: 1 DF, 3X/WEEK (CONTINUING)
     Route: 048
     Dates: start: 201507
  8. HYDROCORTISONE. [Concomitant]
     Active Substance: HYDROCORTISONE
     Dosage: (15 MG PER DAY)5 MG, 3X/DAY
     Route: 048
     Dates: start: 201507
  9. HYDROCORTISONE. [Concomitant]
     Active Substance: HYDROCORTISONE
     Dosage: 10 MG, 3X/DAY
     Route: 048
     Dates: start: 20150909
  10. COMILORID [Interacting]
     Active Substance: HYDROCHLOROTHIAZIDE
     Indication: PERICARDIAL EFFUSION
     Dosage: 50 MG, 2X/DAY (100 MG DAILY)
     Route: 048
     Dates: start: 20150814, end: 20150911
  11. TRANDATE [Interacting]
     Active Substance: LABETALOL HYDROCHLORIDE
     Indication: HYPERTENSION
     Dosage: 350 MG, 3X/DAY (1050 MILLIGRAM DAILY; CONTINUING)
     Route: 048
     Dates: start: 20150707
  12. CISPLATIN. [Interacting]
     Active Substance: CISPLATIN
     Indication: ADRENOCORTICAL CARCINOMA
     Dosage: 66 MG, 1X/DAY (66 MILLIGRAM DAILY; 5TH CYCLE OF CHEMOTHERAPY)
     Route: 041
     Dates: start: 20150907, end: 20150908
  13. ETOPOSIDE. [Suspect]
     Active Substance: ETOPOSIDE
     Indication: ADRENOCORTICAL CARCINOMA
     Dosage: 130 MG, 1X/DAY (130 MILLIGRAM DAILY; 5TH CYCLE OF CHEMOTHERAPY)
     Route: 041
     Dates: start: 20150907, end: 20150909
  14. HYDROCORTISONE. [Concomitant]
     Active Substance: HYDROCORTISONE
     Dosage: 30 MG, 3X/DAY
     Dates: start: 20150911
  15. FLORINEF ACETATE [Concomitant]
     Active Substance: FLUDROCORTISONE ACETATE
     Dosage: 0.05 MG, 2X/DAY (.1 MILLIGRAM DAILY; CONTINUING)
     Route: 048
     Dates: start: 201507
  16. NEXIUM [Concomitant]
     Active Substance: ESOMEPRAZOLE MAGNESIUM
     Dosage: 40 MG, 1X/DAY (40 MILLIGRAM DAILY)
     Route: 048
     Dates: start: 201507
  17. PREDNISONE. [Concomitant]
     Active Substance: PREDNISONE
     Dosage: 12.5 MG, CYCLIC (6.25 MILLIGRAM DAILY)
     Route: 048
     Dates: start: 20150812
  18. INDERAL [Interacting]
     Active Substance: PROPRANOLOL HYDROCHLORIDE
     Indication: SYSTOLIC DYSFUNCTION
     Dosage: 30 MG, 3X/DAY (90 MILLIGRAM DAILY; CONTINUING)
     Route: 048
     Dates: start: 20150814

REACTIONS (7)
  - Drug interaction [Unknown]
  - Hyperkalaemia [Recovered/Resolved]
  - Renal failure [Recovering/Resolving]
  - Hypoaldosteronism [Recovered/Resolved]
  - Metabolic acidosis [Recovered/Resolved]
  - Product use issue [Unknown]
  - Hyponatraemia [Recovered/Resolved]

NARRATIVE: CASE EVENT DATE: 201507
